FAERS Safety Report 8612828-2 (Version None)
Quarter: 2012Q3

REPORT INFORMATION
  Report Type: 
  Country: None (occurrence: None)
  Receive Date: 20120822
  Receipt Date: 20110921
  Transmission Date: 20120928
  Serious: No
  Sender: FDA-Public Use
  Company Number: US-ASTRAZENECA-2010SE61439

PATIENT
  Age: 68 Year
  Sex: Female

DRUGS (5)
  1. SYMBICORT [Suspect]
     Indication: ASTHMA
     Dosage: 80/4.5 MCG 1 PUFF BID
     Route: 055
  2. SYMBICORT [Suspect]
     Indication: CHRONIC OBSTRUCTIVE PULMONARY DISEASE
     Dosage: 80/4.5 MCG 1 PUFF BID
     Route: 055
  3. NEXIUM [Suspect]
     Route: 048
  4. EFFEXOR [Concomitant]
  5. CRESTOR [Suspect]
     Route: 048

REACTIONS (3)
  - DYSPNOEA [None]
  - DERMATITIS BULLOUS [None]
  - RASH PRURITIC [None]
